FAERS Safety Report 19817957 (Version 2)
Quarter: 2021Q3

REPORT INFORMATION
  Report Type: Other
  Country: HR (occurrence: HR)
  Receive Date: 20210910
  Receipt Date: 20210920
  Transmission Date: 20211014
  Serious: Yes (Hospitalization)
  Sender: FDA-Public Use
  Company Number: HR-CELLTRION INC.-2021HR012077

PATIENT

DRUGS (1)
  1. REMSIMA [Suspect]
     Active Substance: INFLIXIMAB
     Indication: COLITIS ULCERATIVE
     Dosage: 100MG; 400MG
     Route: 042
     Dates: start: 20180412, end: 20210407

REACTIONS (4)
  - Drug ineffective [Recovered/Resolved]
  - Underdose [Unknown]
  - Overdose [Unknown]
  - Colitis ulcerative [Recovered/Resolved]

NARRATIVE: CASE EVENT DATE: 20210505
